FAERS Safety Report 6414439-6 (Version None)
Quarter: 2009Q4

REPORT INFORMATION
  Report Type: 
  Country: None (occurrence: None)
  Receive Date: 20091026
  Receipt Date: 20091014
  Transmission Date: 20100525
  Serious: Yes (Hospitalization)
  Sender: FDA-Public Use
  Company Number: PHHY2009JP32946

PATIENT
  Age: 77 Year
  Sex: Male

DRUGS (5)
  1. DIOVAN [Suspect]
     Indication: HYPERTENSION
     Dosage: 80 MG, QD
     Route: 048
     Dates: start: 20061115, end: 20090803
  2. MEVALOTIN [Concomitant]
     Dosage: 10 MG, UNK
     Route: 048
     Dates: start: 20061115, end: 20090803
  3. LANSOPRAZOLE [Concomitant]
     Dosage: 30 MG, UNK
     Route: 048
     Dates: start: 20080722, end: 20090803
  4. DEPAS [Concomitant]
     Route: 048
  5. BUFFERIN [Concomitant]
     Dosage: 81 MG, UNK
     Route: 048

REACTIONS (8)
  - BACK PAIN [None]
  - BLOOD CHLORIDE DECREASED [None]
  - DECREASED APPETITE [None]
  - HEPATIC FUNCTION ABNORMAL [None]
  - HEPATITIS [None]
  - HYPOAESTHESIA [None]
  - HYPONATRAEMIA [None]
  - ORTHOPEDIC PROCEDURE [None]
